FAERS Safety Report 7190397-4 (Version None)
Quarter: 2010Q4

REPORT INFORMATION
  Report Type: 
  Country: None (occurrence: None)
  Receive Date: 20101223
  Receipt Date: 20101220
  Transmission Date: 20110411
  Serious: Yes (Death, Life-Threatening, Hospitalization)
  Sender: FDA-Public Use
  Company Number: JP-PFIZER INC-2009173761

PATIENT
  Age: 84 Year
  Sex: Male
  Weight: 40 kg

DRUGS (12)
  1. LINEZOLID [Suspect]
     Indication: PNEUMONIA STAPHYLOCOCCAL
     Dosage: 600 MG, 2X/DAY
     Route: 041
     Dates: start: 20080105, end: 20080121
  2. AMINOTRIPA 1 [Concomitant]
  3. ELEMENMIC [Concomitant]
  4. VITAJECT [Concomitant]
  5. ALBUMIN HUMAN [Concomitant]
     Dosage: UNK
     Route: 042
     Dates: start: 20080117, end: 20080121
  6. ACARDI [Concomitant]
     Dosage: UNK
     Route: 048
     Dates: start: 20071115, end: 20080131
  7. SODIUM CHLORIDE [Concomitant]
     Dates: start: 20080116, end: 20080131
  8. IMIPENEM AND CILASTATIN [Concomitant]
     Indication: PNEUMONIA STAPHYLOCOCCAL
     Dosage: UNK
     Route: 042
     Dates: start: 20071223, end: 20080113
  9. TORASEMIDE [Concomitant]
     Route: 048
     Dates: start: 20071115, end: 20080131
  10. TENORMIN [Concomitant]
     Route: 048
     Dates: start: 20071104, end: 20080131
  11. BENZALIN [Concomitant]
     Route: 048
     Dates: start: 20071104, end: 20080131
  12. ENSURE [Concomitant]
     Dates: start: 20080108, end: 20080131

REACTIONS (8)
  - ANAEMIA [None]
  - BACTERIAL INFECTION [None]
  - HYPOALBUMINAEMIA [None]
  - HYPONATRAEMIA [None]
  - PLATELET COUNT DECREASED [None]
  - PNEUMONIA [None]
  - RIGHT VENTRICULAR FAILURE [None]
  - WHITE BLOOD CELL COUNT DECREASED [None]
